FAERS Safety Report 11549422 (Version 2)
Quarter: 2016Q1

REPORT INFORMATION
  Report Type: Spontaneous
  Country: US (occurrence: US)
  Receive Date: 20150924
  Receipt Date: 20160120
  Transmission Date: 20160525
  Serious: No
  Sender: FDA-Public Use
  Company Number: US-INCYTE CORPORATION-2015IN003272

PATIENT
  Sex: Female
  Weight: 58.05 kg

DRUGS (18)
  1. NAPROXEN. [Concomitant]
     Active Substance: NAPROXEN
  2. CHLORHEXADINE GLUCONATE [Concomitant]
  3. MELOXICAM. [Concomitant]
     Active Substance: MELOXICAM
  4. CALCIUM [Concomitant]
     Active Substance: CALCIUM
  5. JAKAFI [Suspect]
     Active Substance: RUXOLITINIB
     Indication: MYELOFIBROSIS
     Dosage: 10 MG IN THE MORNING AND 10 MG AT NIGHT
     Route: 048
     Dates: start: 20141010
  6. JAKAFI [Suspect]
     Active Substance: RUXOLITINIB
     Dosage: 15 MG
     Route: 048
  7. JAKAFI [Suspect]
     Active Substance: RUXOLITINIB
     Dosage: 5 MG, BID
     Route: 048
  8. DOXYCYCLINE HYCLATE. [Concomitant]
     Active Substance: DOXYCYCLINE HYCLATE
  9. RIZATRIPTAN. [Concomitant]
     Active Substance: RIZATRIPTAN
  10. FISH OIL [Concomitant]
     Active Substance: FISH OIL
     Dosage: UNK
  11. COLCHICINE. [Concomitant]
     Active Substance: COLCHICINE
  12. NARATRIPTAN HYDROCHLORIDE. [Concomitant]
     Active Substance: NARATRIPTAN HYDROCHLORIDE
  13. ACIPHEX [Concomitant]
     Active Substance: RABEPRAZOLE SODIUM
     Dosage: 20 MG
  14. VITAMIN D3 [Concomitant]
     Active Substance: CHOLECALCIFEROL
     Dosage: 2000 UNIT
  15. VITAMIN D                       /00107901/ [Concomitant]
     Active Substance: ERGOCALCIFEROL
  16. AMOXICILLIN. [Concomitant]
     Active Substance: AMOXICILLIN
  17. NEOMYCIN POLYMIXIN [Concomitant]
     Active Substance: NEOMYCIN\POLYMYXIN
  18. HYDROCODONE AND ACETAMINOPHEN [Concomitant]
     Active Substance: ACETAMINOPHEN\HYDROCODONE

REACTIONS (13)
  - Lyme disease [Unknown]
  - Neuroma [Unknown]
  - Pruritus [Unknown]
  - Oedema peripheral [Unknown]
  - Emotional distress [Not Recovered/Not Resolved]
  - Pain in extremity [Recovering/Resolving]
  - Raynaud^s phenomenon [Unknown]
  - Arthralgia [Recovering/Resolving]
  - Collagen-vascular disease [Unknown]
  - Dry skin [Unknown]
  - Bone marrow oedema [Not Recovered/Not Resolved]
  - Nocturia [Not Recovered/Not Resolved]
  - Weight increased [Unknown]
